FAERS Safety Report 16230931 (Version 1)
Quarter: 2019Q2

REPORT INFORMATION
  Report Type: Report from Study
  Country: US (occurrence: US)
  Receive Date: 20190423
  Receipt Date: 20190423
  Transmission Date: 20190711
  Serious: Yes (Other)
  Sender: FDA-Public Use
  Company Number: PHEH2019US016348

PATIENT
  Sex: Female

DRUGS (2)
  1. METOPROLOL TARTRATE. [Suspect]
     Active Substance: METOPROLOL TARTRATE
     Indication: CARDIAC FAILURE
     Dosage: UNK
     Route: 065
     Dates: start: 201402
  2. LOSARTAN. [Suspect]
     Active Substance: LOSARTAN
     Indication: CARDIAC FAILURE
     Dosage: UNK
     Route: 065
     Dates: start: 201402

REACTIONS (4)
  - Road traffic accident [Unknown]
  - Seizure [Unknown]
  - Palpitations [Unknown]
  - Fatigue [Unknown]
